FAERS Safety Report 6164099-7 (Version None)
Quarter: 2009Q2

REPORT INFORMATION
  Report Type: 
  Country: None (occurrence: None)
  Receive Date: 20090422
  Receipt Date: 20090417
  Transmission Date: 20091009
  Serious: Yes (Hospitalization)
  Sender: FDA-Public Use
  Company Number: B0427821B

PATIENT
  Sex: Male
  Weight: 106 kg

DRUGS (9)
  1. ROSIGLITAZONE [Suspect]
     Dosage: 4MG PER DAY
     Route: 048
     Dates: start: 20011217
  2. SULPHONYLUREA [Suspect]
     Route: 048
     Dates: start: 20030225
  3. GLUCOPHAGE [Concomitant]
     Dosage: 2550MG PER DAY
     Route: 048
     Dates: start: 20010301
  4. METFORMIN HCL [Concomitant]
  5. SELOKEN ZOC [Concomitant]
  6. SIMVASTATIN [Concomitant]
  7. ENALAPRIL [Concomitant]
  8. EUGLUCON [Concomitant]
  9. WARFARIN SODIUM [Concomitant]

REACTIONS (4)
  - ATRIAL FIBRILLATION [None]
  - CHEST DISCOMFORT [None]
  - CHEST PAIN [None]
  - PAIN IN EXTREMITY [None]
